FAERS Safety Report 5292281-X (Version None)
Quarter: 2007Q2

REPORT INFORMATION
  Report Type: 
  Country: None (occurrence: None)
  Receive Date: 20070410
  Receipt Date: 20070405
  Transmission Date: 20071010
  Serious: Yes (Other)
  Sender: FDA-Public Use
  Company Number: JP-BRISTOL-MYERS SQUIBB COMPANY-13716873

PATIENT
  Age: 46 Year
  Sex: Male

DRUGS (6)
  1. GATIFLO TABS 100 MG [Suspect]
     Indication: TONSILLITIS
     Route: 048
     Dates: start: 20061128, end: 20061201
  2. BIOFERMIN [Concomitant]
     Route: 048
     Dates: start: 20061228, end: 20070104
  3. HUSCODE [Concomitant]
     Indication: ANTITUSSIVE THERAPY
     Route: 048
     Dates: start: 20061128, end: 20061201
  4. ASTAT [Concomitant]
     Route: 061
     Dates: start: 20040901
  5. LEVOFLOXACIN [Concomitant]
     Route: 048
     Dates: start: 20061228, end: 20070104
  6. PL [Concomitant]
     Dates: start: 20061228, end: 20070104

REACTIONS (1)
  - DIABETES MELLITUS [None]
